FAERS Safety Report 10275469 (Version 1)
Quarter: 2014Q3

REPORT INFORMATION
  Report Type: Spontaneous
  Country: US (occurrence: US)
  Receive Date: 20140703
  Receipt Date: 20140703
  Transmission Date: 20150326
  Serious: No
  Sender: FDA-Public Use
  Company Number: US-SHIRE-US201403557

PATIENT
  Age: 10 Year
  Sex: Male

DRUGS (5)
  1. FOCALIN [Concomitant]
     Active Substance: DEXMETHYLPHENIDATE HYDROCHLORIDE
     Dosage: 40 MG, OTHER (SOMETIMES TAKES FOCALIN 40 MG TWICE A DAY)
     Route: 048
     Dates: end: 2014
  2. VYVANSE [Suspect]
     Active Substance: LISDEXAMFETAMINE DIMESYLATE
     Dosage: UNK, UNKNOWN
     Route: 048
  3. VYVANSE [Suspect]
     Active Substance: LISDEXAMFETAMINE DIMESYLATE
     Indication: ATTENTION DEFICIT/HYPERACTIVITY DISORDER
     Dosage: 30 MG, 1X/DAY:QD (SWITCHES BETWEEN THE 30 MG AND 40 MG DOSAGE ONCE DAILY IN THE MORNING)
     Route: 048
  4. FOCALIN [Concomitant]
     Active Substance: DEXMETHYLPHENIDATE HYDROCHLORIDE
     Indication: ATTENTION DEFICIT/HYPERACTIVITY DISORDER
     Dosage: 40 MG, 1X/DAY:QD (IN THE AFTERNOON)
     Route: 048
     Dates: end: 2014
  5. VYVANSE [Suspect]
     Active Substance: LISDEXAMFETAMINE DIMESYLATE
     Dosage: 40 MG, 1X/DAY:QD  (SWITCHES BETWEEN THE 30 MG AND 40 MG DOSAGE ONCE DAILY IN THE MORNING)
     Route: 048

REACTIONS (3)
  - Growth retardation [Not Recovered/Not Resolved]
  - Headache [Unknown]
  - Weight gain poor [Unknown]

NARRATIVE: CASE EVENT DATE: 20140626
